FAERS Safety Report 8232477-8 (Version None)
Quarter: 2012Q1

REPORT INFORMATION
  Report Type: 
  Country: None (occurrence: None)
  Receive Date: 20120323
  Receipt Date: 20120314
  Transmission Date: 20120608
  Serious: Yes (Hospitalization)
  Sender: FDA-Public Use
  Company Number: US-CELGENEUS-163-20785-12012240

PATIENT
  Sex: Female

DRUGS (6)
  1. DAPSONE [Suspect]
     Dosage: 25 MILLIGRAM
     Route: 065
     Dates: start: 20111130, end: 20111226
  2. PREDNISONE [Concomitant]
     Dosage: 40 MILLIGRAM
     Route: 065
     Dates: start: 20111130
  3. CLOFAZIMINE [Concomitant]
     Dosage: 50 MILLIGRAM
     Route: 065
     Dates: start: 20120120
  4. MINOCIN [Concomitant]
     Dosage: 100 MILLIGRAM
     Route: 065
     Dates: start: 20111130, end: 20111226
  5. THALOMID [Suspect]
     Indication: LEPROMATOUS LEPROSY
     Dosage: 100 MILLIGRAM
     Route: 048
     Dates: start: 20111130, end: 20111226
  6. RIFAMPIN [Concomitant]
     Dosage: 600 MILLIGRAM
     Route: 065
     Dates: start: 20111130, end: 20111226

REACTIONS (1)
  - DAPSONE SYNDROME [None]
